FAERS Safety Report 23836972 (Version 1)
Quarter: 2024Q2

REPORT INFORMATION
  Report Type: Spontaneous
  Country: US (occurrence: None)
  Receive Date: 20240508
  Receipt Date: 20240508
  Transmission Date: 20240716
  Serious: Yes (Other)
  Sender: FDA-Public Use
  Company Number: None

PATIENT
  Age: 53 Year
  Sex: Female
  Weight: 80.1 kg

DRUGS (1)
  1. EMGALITY [Suspect]
     Active Substance: GALCANEZUMAB-GNLM
     Indication: Migraine
     Dates: start: 20231222, end: 20240402

REACTIONS (4)
  - Constipation [None]
  - Chest discomfort [None]
  - Abdominal distension [None]
  - Metabolic disorder [None]

NARRATIVE: CASE EVENT DATE: 20240309
